FAERS Safety Report 8311162-8 (Version None)
Quarter: 2012Q2

REPORT INFORMATION
  Report Type: 
  Country: None (occurrence: None)
  Receive Date: 20120423
  Receipt Date: 20120409
  Transmission Date: 20120825
  Serious: Yes (Hospitalization)
  Sender: FDA-Public Use
  Company Number: 2012SP019213

PATIENT
  Age: 81 Year
  Sex: Male

DRUGS (1)
  1. ONCOTICE [Suspect]
     Indication: BLADDER CANCER
     Dosage: INVES

REACTIONS (10)
  - CYTOLYTIC HEPATITIS [None]
  - CHOLESTASIS [None]
  - GRANULOMATOUS LIVER DISEASE [None]
  - PNEUMONITIS [None]
  - GENERAL PHYSICAL HEALTH DETERIORATION [None]
  - NEUTROPHILIA [None]
  - DISORIENTATION [None]
  - UROSEPSIS [None]
  - RHABDOMYOLYSIS [None]
  - ARTHRITIS [None]
